FAERS Safety Report 24950219 (Version 1)
Quarter: 2025Q1

REPORT INFORMATION
  Report Type: Spontaneous
  Country: CA (occurrence: CA)
  Receive Date: 20250210
  Receipt Date: 20250210
  Transmission Date: 20250408
  Serious: Yes (Hospitalization)
  Sender: TEVA
  Company Number: CA-TEVA-VS-3296615

PATIENT
  Age: 61 Year
  Sex: Female
  Weight: 58 kg

DRUGS (17)
  1. CANDESARTAN [Suspect]
     Active Substance: CANDESARTAN
     Indication: Product used for unknown indication
     Route: 065
  2. ACTEMRA [Suspect]
     Active Substance: TOCILIZUMAB
     Indication: Product used for unknown indication
     Route: 065
  3. XELJANZ [Suspect]
     Active Substance: TOFACITINIB CITRATE
     Indication: Rheumatoid arthritis
     Route: 048
  4. ORENCIA [Suspect]
     Active Substance: ABATACEPT
     Indication: Product used for unknown indication
     Route: 065
  5. BARICITINIB [Suspect]
     Active Substance: BARICITINIB
     Indication: Product used for unknown indication
     Route: 065
  6. SULFASALAZINE [Suspect]
     Active Substance: SULFASALAZINE
     Indication: Product used for unknown indication
     Route: 065
  7. SIMPONI [Suspect]
     Active Substance: GOLIMUMAB
     Indication: Product used for unknown indication
     Route: 058
  8. METHYLPREDNISOLONE ACETATE [Suspect]
     Active Substance: METHYLPREDNISOLONE ACETATE
     Indication: Product used for unknown indication
     Route: 065
  9. ERELZI [Suspect]
     Active Substance: ETANERCEPT-SZZS
     Indication: Product used for unknown indication
     Route: 065
  10. ACETAMINOPHEN [Suspect]
     Active Substance: ACETAMINOPHEN
     Indication: Product used for unknown indication
     Route: 048
  11. CELEBREX [Suspect]
     Active Substance: CELECOXIB
     Indication: Product used for unknown indication
     Route: 065
  12. DYMISTA [Suspect]
     Active Substance: AZELASTINE HYDROCHLORIDE\FLUTICASONE PROPIONATE
     Indication: Product used for unknown indication
     Route: 065
  13. CIMZIA [Suspect]
     Active Substance: CERTOLIZUMAB PEGOL
     Indication: Product used for unknown indication
     Route: 065
  14. XIIDRA [Suspect]
     Active Substance: LIFITEGRAST
     Indication: Product used for unknown indication
     Route: 065
  15. DESOXIMETASONE [Suspect]
     Active Substance: DESOXIMETASONE
     Indication: Product used for unknown indication
     Route: 065
  16. MELOXICAM [Suspect]
     Active Substance: MELOXICAM
     Indication: Product used for unknown indication
     Route: 065
  17. RABEPRAZOLE [Suspect]
     Active Substance: RABEPRAZOLE
     Indication: Product used for unknown indication
     Route: 048

REACTIONS (5)
  - Pneumonia [Unknown]
  - Platelet count decreased [Unknown]
  - Drug ineffective [Unknown]
  - Blood folate decreased [Unknown]
  - Arthritis [Unknown]
